FAERS Safety Report 24156908 (Version 5)
Quarter: 2024Q4

REPORT INFORMATION
  Report Type: Spontaneous
  Country: US (occurrence: US)
  Receive Date: 20240731
  Receipt Date: 20241010
  Transmission Date: 20250115
  Serious: No
  Sender: VERTEX
  Company Number: US-VERTEX PHARMACEUTICALS-2024-005401

PATIENT
  Sex: Female
  Weight: 16 kg

DRUGS (2)
  1. TRIKAFTA [Suspect]
     Active Substance: ELEXACAFTOR\IVACAFTOR\TEZACAFTOR
     Indication: Cystic fibrosis
     Dosage: 100 MG ELEXA/ 50 MG TEZA/ 75 MG IVA; 75 MG IVA
     Route: 048
     Dates: start: 20240126, end: 20240205
  2. TRIKAFTA [Suspect]
     Active Substance: ELEXACAFTOR\IVACAFTOR\TEZACAFTOR
     Dosage: (LOWER DOSE) 80 MG ELEXACAFTOR/ 40 MG TEZACAFTOR/  60 MG IVACAFTOR AND 59.5 MG IVACAFTOR, BID
     Route: 048
     Dates: start: 20240423, end: 20240719

REACTIONS (11)
  - Initial insomnia [Recovered/Resolved]
  - Crying [Recovered/Resolved]
  - Irritability [Recovered/Resolved]
  - Blepharospasm [Recovered/Resolved]
  - Tremor [Recovered/Resolved]
  - Dysphemia [Recovered/Resolved]
  - Excessive eye blinking [Recovered/Resolved]
  - Middle insomnia [Unknown]
  - Nightmare [Unknown]
  - Constipation [Not Recovered/Not Resolved]
  - Emotional disorder [Unknown]

NARRATIVE: CASE EVENT DATE: 20240101
